FAERS Safety Report 7719450-0 (Version None)
Quarter: 2011Q3

REPORT INFORMATION
  Report Type: 
  Country: None (occurrence: None)
  Receive Date: 20110830
  Receipt Date: 20110817
  Transmission Date: 20111222
  Serious: Yes (Other)
  Sender: FDA-Public Use
  Company Number: PHHY2011US34353

PATIENT
  Sex: Female
  Weight: 49.887 kg

DRUGS (9)
  1. VITAMIN D [Concomitant]
     Dosage: 2000 IU, DAILY
  2. AMBIEN [Concomitant]
     Indication: SLEEP DISORDER
     Dosage: 10 MG AT BED TIME
  3. GILENYA [Suspect]
     Indication: RELAPSING-REMITTING MULTIPLE SCLEROSIS
     Dosage: 0.5 MG, QD
     Route: 048
     Dates: start: 20110124
  4. CRANBERRY [Concomitant]
     Dosage: UNK UKN, UNK
  5. LYRICA [Concomitant]
     Dosage: 200 MG, TID
  6. SENNA [Concomitant]
     Dosage: UNK UKN, UNK
     Route: 048
  7. VITAMIN B-12 [Concomitant]
     Dosage: UNK UKN, UNK
  8. VITAMINS NOS [Concomitant]
     Dosage: UNK UKN, UNK
  9. ASCORBIC ACID [Concomitant]
     Dosage: UNK UKN, UNK

REACTIONS (47)
  - DIZZINESS [None]
  - ANAL FISTULA [None]
  - HYPERTONIA [None]
  - MUSCLE TIGHTNESS [None]
  - CD8 LYMPHOCYTES DECREASED [None]
  - RED CELL DISTRIBUTION WIDTH INCREASED [None]
  - BLOOD PRESSURE ORTHOSTATIC DECREASED [None]
  - PRESYNCOPE [None]
  - BLISTER [None]
  - MUSCULOSKELETAL STIFFNESS [None]
  - ASTHENIA [None]
  - DYSAESTHESIA [None]
  - URINE ANALYSIS ABNORMAL [None]
  - ERYTHEMA [None]
  - HYPERAESTHESIA [None]
  - DECREASED VIBRATORY SENSE [None]
  - HYPOAESTHESIA [None]
  - CELLULITIS [None]
  - OEDEMA PERIPHERAL [None]
  - FATIGUE [None]
  - VISUAL ACUITY REDUCED [None]
  - MYALGIA [None]
  - URINARY INCONTINENCE [None]
  - SKIN LESION [None]
  - ATAXIA [None]
  - MUSCULAR WEAKNESS [None]
  - BONE DENSITY ABNORMAL [None]
  - POSITIVE ROMBERGISM [None]
  - LYMPHOCYTE COUNT DECREASED [None]
  - CD4 LYMPHOCYTES DECREASED [None]
  - NOCTURIA [None]
  - EOSINOPHIL COUNT DECREASED [None]
  - LOCALISED INFECTION [None]
  - T-LYMPHOCYTE COUNT DECREASED [None]
  - B-LYMPHOCYTE COUNT DECREASED [None]
  - CONSTIPATION [None]
  - BLISTER INFECTED [None]
  - MUSCULOSKELETAL DISORDER [None]
  - TEMPERATURE INTOLERANCE [None]
  - WHITE BLOOD CELL COUNT DECREASED [None]
  - MULTIPLE SCLEROSIS RELAPSE [None]
  - GAIT DISTURBANCE [None]
  - HYPOREFLEXIA [None]
  - GAIT SPASTIC [None]
  - BALANCE DISORDER [None]
  - ANXIETY [None]
  - POLLAKIURIA [None]
